FAERS Safety Report 17281561 (Version 1)
Quarter: 2020Q1

REPORT INFORMATION
  Report Type: Spontaneous
  Country: US (occurrence: US)
  Receive Date: 20191227
  Receipt Date: 20191227
  Transmission Date: 20200409
  Serious: No
  Sender: FDA-Public Use
  Company Number: None

PATIENT

DRUGS (1)
  1. NORTRIPTYLINE [Suspect]
     Active Substance: NORTRIPTYLINE

REACTIONS (8)
  - Wrong technique in product usage process [None]
  - Feeling abnormal [None]
  - Gastritis [None]
  - Hypoaesthesia oral [None]
  - Oesophagitis [None]
  - Choking sensation [None]
  - Gastric ulcer [None]
  - Hiatus hernia [None]
